FAERS Safety Report 5679768-2 (Version None)
Quarter: 2008Q1

REPORT INFORMATION
  Report Type: 
  Country: None (occurrence: None)
  Receive Date: 20080324
  Receipt Date: 20080314
  Transmission Date: 20080703
  Serious: Yes (Hospitalization, Other)
  Sender: FDA-Public Use
  Company Number: 2005BI007421

PATIENT
  Age: 57 Year
  Sex: Female
  Weight: 87.9978 kg

DRUGS (19)
  1. AVONEX [Suspect]
     Indication: MULTIPLE SCLEROSIS
     Dosage: 30 UG;QW;IM
     Route: 030
     Dates: start: 20030807, end: 20070101
  2. PRAVACHOL [Concomitant]
  3. PENTOXIFYLLINE [Concomitant]
  4. OXYBUTNIN [Concomitant]
  5. IMIPRAMIDE [Concomitant]
  6. PREVACID [Concomitant]
  7. POTASSIUM CHLORIDE [Concomitant]
  8. PROCHLORPERAZINE [Concomitant]
  9. SPIRONOLACTONE [Concomitant]
  10. ZAROXOLYN [Concomitant]
  11. FORTAZ [Concomitant]
  12. VANCOMYCIN [Concomitant]
  13. ACTOS [Concomitant]
  14. ALPHAGAN [Concomitant]
  15. ALPHAGAN [Concomitant]
  16. CLONIDINE HCL [Concomitant]
  17. GLYBURIDE [Concomitant]
  18. LOTREL [Concomitant]
  19. GLIPIZIDE [Concomitant]

REACTIONS (11)
  - ANAEMIA [None]
  - ARTHROPOD BITE [None]
  - ASTHENIA [None]
  - BLOOD CREATININE INCREASED [None]
  - BONE MARROW FAILURE [None]
  - BREAST CANCER FEMALE [None]
  - CONDITION AGGRAVATED [None]
  - EXCORIATION [None]
  - INFECTION [None]
  - MULTIPLE SCLEROSIS [None]
  - WEIGHT DECREASED [None]
